FAERS Safety Report 8904924 (Version 1)
Quarter: 2012Q4

REPORT INFORMATION
  Report Type: 
  Country: US (occurrence: US)
  Receive Date: 20121109
  Receipt Date: 20121109
  Transmission Date: 20130627
  Serious: Yes (Other)
  Sender: FDA-Public Use
  Company Number: US-ASTRAZENECA-2012SE83672

PATIENT
  Age: 63 Year
  Sex: Female

DRUGS (4)
  1. SYMBICORT PMDI [Suspect]
     Indication: ASTHMA
     Dosage: 160/4.5 mcg,unknown frequency
     Route: 055
  2. VENTOLIN [Concomitant]
     Indication: CONDITION AGGRAVATED
     Route: 055
  3. SINGULAIR [Concomitant]
     Route: 048
  4. MONTELUKAST SODIUM [Concomitant]
     Route: 048

REACTIONS (2)
  - Cataract nuclear [Unknown]
  - Cataract cortical [Unknown]
